FAERS Safety Report 6018937-9 (Version None)
Quarter: 2008Q4

REPORT INFORMATION
  Report Type: 
  Country: None (occurrence: None)
  Receive Date: 20081224
  Receipt Date: 20081215
  Transmission Date: 20090506
  Serious: Yes (Death)
  Sender: FDA-Public Use
  Company Number: US-PFIZER INC-2008154279

PATIENT
  Age: 52 Year
  Sex: Male

DRUGS (8)
  1. VERAPAMIL HCL [Suspect]
     Route: 048
  2. GLIPIZIDE [Suspect]
  3. METFORMIN HCL [Suspect]
  4. HYDROGEN PEROXIDE [Suspect]
  5. TRIAMTERENE AND HYDROCHLOROTHIAZIDE [Suspect]
  6. LITHIUM [Suspect]
  7. OLANZAPINE [Suspect]
  8. MEVACOR [Suspect]

REACTIONS (1)
  - COMPLETED SUICIDE [None]
